FAERS Safety Report 9723247 (Version 3)
Quarter: 2014Q1

REPORT INFORMATION
  Report Type: Report from Study
  Country: US (occurrence: US)
  Receive Date: 20131202
  Receipt Date: 20140115
  Transmission Date: 20141002
  Serious: Yes (Hospitalization, Other)
  Sender: FDA-Public Use
  Company Number: US-BAYER-2013-133142

PATIENT
  Age: 45 Year
  Sex: Male

DRUGS (2)
  1. STIVARGA [Suspect]
     Indication: COLON CANCER
     Dosage: 4 X 40 (160 MG DAILY)
     Route: 048
     Dates: start: 201310
  2. STIVARGA [Suspect]
     Indication: COLON CANCER
     Dosage: 3 X 40 (120 MG DAILY)
     Route: 048

REACTIONS (9)
  - Fatigue [None]
  - Oropharyngeal pain [None]
  - Pyrexia [None]
  - Rash generalised [None]
  - Discomfort [None]
  - Erythema [None]
  - Local swelling [None]
  - Haematochezia [None]
  - Musculoskeletal discomfort [None]
